FAERS Safety Report 5786721-7 (Version None)
Quarter: 2008Q2

REPORT INFORMATION
  Report Type: 
  Country: None (occurrence: None)
  Receive Date: 20080624
  Receipt Date: 20080612
  Transmission Date: 20081010
  Serious: Yes (Disabling)
  Sender: FDA-Public Use
  Company Number: US-ELI_LILLY_AND_COMPANY-US200806001289

PATIENT
  Sex: Female
  Weight: 41.27 kg

DRUGS (3)
  1. FORTEO [Suspect]
     Indication: OSTEOPOROSIS
     Dosage: UNK, UNK
     Dates: start: 20040101, end: 20050101
  2. FORTEO [Suspect]
     Dates: start: 20080501
  3. COPAXONE [Concomitant]

REACTIONS (2)
  - BONE DENSITY DECREASED [None]
  - MULTIPLE SCLEROSIS [None]
